FAERS Safety Report 7332708-2 (Version None)
Quarter: 2011Q1

REPORT INFORMATION
  Report Type: 
  Country: None (occurrence: None)
  Receive Date: 20110304
  Receipt Date: 20110223
  Transmission Date: 20110831
  Serious: Yes (Other)
  Sender: FDA-Public Use
  Company Number: IE-BRACCO-000081

PATIENT
  Age: 73 Year
  Sex: Female

DRUGS (1)
  1. NIOPAM [Suspect]
     Indication: ANGIOGRAM
     Dates: start: 20110117, end: 20110117

REACTIONS (2)
  - HYPOAESTHESIA ORAL [None]
  - PRURITUS [None]
